FAERS Safety Report 9144860 (Version 1)
Quarter: 2013Q1

REPORT INFORMATION
  Report Type: Spontaneous
  Country: CO (occurrence: CO)
  Receive Date: 20130307
  Receipt Date: 20130307
  Transmission Date: 20140127
  Serious: Yes (Other)
  Sender: FDA-Public Use
  Company Number: CO-MERCK-2012SP012047

PATIENT
  Age: 73 Year
  Sex: Male

DRUGS (6)
  1. PEG-INTRON [Suspect]
     Indication: HEPATITIS C
     Dosage: 100 MICROGRAM,WEEKLY
     Route: 059
     Dates: start: 20111019
  2. PEG-INTRON [Suspect]
     Dosage: 80 MICROGRAM
  3. PEG-INTRON [Suspect]
     Dosage: 100 MICROGRAM,WEEKLY
     Route: 059
     Dates: start: 20121120
  4. RIBAVIRIN [Suspect]
     Indication: HEPATITIS C
     Dosage: 2 DF, QD
     Route: 048
  5. VICTRELIS [Suspect]
     Indication: HEPATITIS C
  6. DOLEX (ACETAMINOPHEN) [Concomitant]

REACTIONS (3)
  - Platelet count decreased [Not Recovered/Not Resolved]
  - Platelet count decreased [Unknown]
  - Asthenia [Unknown]
